FAERS Safety Report 18651869 (Version 1)
Quarter: 2020Q4

REPORT INFORMATION
  Report Type: Spontaneous
  Country: GB (occurrence: GB)
  Receive Date: 20201222
  Receipt Date: 20201222
  Transmission Date: 20210114
  Serious: Yes (Death, Hospitalization, Other)
  Sender: FDA-Public Use
  Company Number: GB-DSJP-DSE-2020-139091

PATIENT
  Age: 91 Year
  Sex: Male

DRUGS (1)
  1. LIXIANA [Suspect]
     Active Substance: EDOXABAN TOSYLATE
     Indication: PRODUCT USED FOR UNKNOWN INDICATION
     Dosage: 30 MG, QD
     Route: 048
     Dates: start: 2020, end: 2020

REACTIONS (11)
  - Internal haemorrhage [Unknown]
  - Blood test abnormal [Unknown]
  - Dementia [Unknown]
  - Death [Fatal]
  - Anaemia [Unknown]
  - Renal impairment [Unknown]
  - Renal haemorrhage [Unknown]
  - Diarrhoea [Unknown]
  - Dehydration [Unknown]
  - COVID-19 [Unknown]
  - Weight decreased [Unknown]

NARRATIVE: CASE EVENT DATE: 2020
